FAERS Safety Report 17906651 (Version 1)
Quarter: 2020Q2

REPORT INFORMATION
  Report Type: Spontaneous
  Country: US (occurrence: US)
  Receive Date: 20200616
  Receipt Date: 20200616
  Transmission Date: 20200714
  Serious: Yes (Other)
  Sender: FDA-Public Use
  Company Number: US-ROCHE-2580601

PATIENT
  Sex: Female
  Weight: 63.56 kg

DRUGS (5)
  1. TURMERIC [CURCUMA LONGA] [Concomitant]
     Active Substance: HERBALS\TURMERIC
  2. ACTEMRA [Suspect]
     Active Substance: TOCILIZUMAB
     Indication: TEMPORAL ARTERITIS
     Dosage: NO
     Route: 058
     Dates: start: 2019
  3. CALCIUM [Concomitant]
     Active Substance: CALCIUM
  4. ABALOPARATIDE [Concomitant]
     Active Substance: ABALOPARATIDE
     Indication: OSTEOPOROSIS
     Route: 065
     Dates: start: 201904
  5. ACTEMRA [Suspect]
     Active Substance: TOCILIZUMAB
     Indication: POLYMYALGIA RHEUMATICA
     Dosage: YES
     Route: 058
     Dates: start: 2020

REACTIONS (9)
  - Urinary tract infection [Recovered/Resolved]
  - Intentional product use issue [Unknown]
  - Vertigo [Recovered/Resolved]
  - Compression fracture [Unknown]
  - Abdominal pain upper [Recovering/Resolving]
  - Decreased appetite [Recovering/Resolving]
  - Tenderness [Not Recovered/Not Resolved]
  - Tinnitus [Not Recovered/Not Resolved]
  - Off label use [Unknown]

NARRATIVE: CASE EVENT DATE: 2019
